FAERS Safety Report 25518057 (Version 3)
Quarter: 2025Q3

REPORT INFORMATION
  Report Type: Report from Study
  Country: US (occurrence: US)
  Receive Date: 20250704
  Receipt Date: 20250810
  Transmission Date: 20251021
  Serious: Yes (Hospitalization, Other)
  Sender: ALEXION PHARMACEUTICALS
  Company Number: US-AstraZeneca-CH-00901939A

PATIENT
  Sex: Female

DRUGS (1)
  1. ULTOMIRIS [Suspect]
     Active Substance: RAVULIZUMAB-CWVZ
     Indication: Myasthenia gravis
     Route: 065

REACTIONS (10)
  - Spinal fracture [Unknown]
  - Fall [Unknown]
  - Foot fracture [Unknown]
  - Upper limb fracture [Unknown]
  - Myasthenia gravis crisis [Unknown]
  - Pneumonia [Unknown]
  - Panic attack [Unknown]
  - Nasopharyngitis [Unknown]
  - Fatigue [Unknown]
  - Pain [Unknown]
